FAERS Safety Report 8240687-9 (Version None)
Quarter: 2012Q1

REPORT INFORMATION
  Report Type: 
  Country: None (occurrence: None)
  Receive Date: 20120328
  Receipt Date: 20120316
  Transmission Date: 20120608
  Serious: Yes (Death, Hospitalization, Other)
  Sender: FDA-Public Use
  Company Number: JP-SANOFI-AVENTIS-2011SA042392

PATIENT
  Age: 23 Year
  Sex: Male
  Weight: 53 kg

DRUGS (37)
  1. FLUDARABINE PHOSPHATE [Suspect]
     Indication: BONE MARROW CONDITIONING REGIMEN
     Route: 048
     Dates: start: 20100204, end: 20100208
  2. PIPERACILLIN SODIUM [Concomitant]
     Dates: start: 20100204, end: 20100216
  3. MELPHALAN HYDROCHLORIDE [Concomitant]
     Dates: start: 20100209, end: 20100210
  4. METHYLPHENIDATE [Concomitant]
     Dates: start: 20100210, end: 20100211
  5. TACROLIMUS [Concomitant]
     Dates: start: 20100211, end: 20100623
  6. VANCOMYCIN HYDROCHLORIDE [Concomitant]
     Dates: start: 20100204, end: 20100305
  7. POLYMYXIN B SULFATE [Concomitant]
     Dates: start: 20100204, end: 20100305
  8. CYCLOPHOSPHAMIDE [Concomitant]
     Dates: start: 20091026, end: 20091121
  9. DALTEPARIN SODIUM [Concomitant]
     Dates: start: 20100204, end: 20100330
  10. FILGRASTIM [Concomitant]
     Dates: start: 20100213, end: 20100226
  11. IMIPEM [Concomitant]
     Dates: start: 20100217, end: 20100222
  12. FLUCONAL [Concomitant]
     Dates: start: 20100205, end: 20100402
  13. SULFAMETHOPRIM [Concomitant]
     Dates: start: 20100225
  14. PIRARUBICIN HYDROCHLORIDE [Concomitant]
  15. GLUTATHIONE [Concomitant]
     Dates: start: 20100204, end: 20100401
  16. FAMOTIDINE [Concomitant]
     Dates: end: 20110114
  17. HYDROCORTISONE SODIUM SUCCINATE [Concomitant]
     Dates: start: 20100204, end: 20100212
  18. PREDNISOLONE ACETATE [Concomitant]
     Dates: start: 20100212, end: 20100223
  19. ETHYL ICOSAPENTATE [Concomitant]
     Dates: start: 20100205, end: 20100430
  20. SULFAMETHOPRIM [Concomitant]
     Dates: start: 20100225
  21. ITRACONAZOL A [Concomitant]
     Dates: start: 20100401
  22. PLATELETS [Concomitant]
     Dates: start: 20100214, end: 20100808
  23. THYMOGLOBULIN [Suspect]
     Indication: BONE MARROW CONDITIONING REGIMEN
     Route: 065
     Dates: start: 20100210, end: 20100211
  24. CARBOPLATIN [Concomitant]
     Dates: start: 20090805, end: 20090926
  25. ZOVIRAX [Concomitant]
     Dates: start: 20100205, end: 20100321
  26. IFOSFAMIDE [Concomitant]
     Dates: start: 20090803, end: 20090926
  27. FAMOTIDINE [Concomitant]
     Dates: start: 20100204, end: 20100303
  28. GRANISETRON HCL [Concomitant]
     Dates: start: 20100204, end: 20100314
  29. MICAFUNGIN SODIUM [Concomitant]
     Dates: start: 20100204
  30. URSODIOL [Concomitant]
     Dates: start: 20100205, end: 20100430
  31. ALL OTHER THERAPEUTIC PRODUCTS [Concomitant]
     Dates: start: 20100204, end: 20100401
  32. HYDROXYZINE HYDROCHLORIDE [Concomitant]
     Dates: start: 20100210, end: 20100806
  33. CEFTRIAXONE [Concomitant]
     Dates: start: 20100226, end: 20100807
  34. PREDNISOLONE [Concomitant]
     Indication: GRAFT VERSUS HOST DISEASE IN SKIN
     Dates: start: 20100225
  35. ETOPOSIDE [Concomitant]
     Dates: start: 20090803, end: 20090926
  36. VINCRISTINE SULFATE [Concomitant]
     Dates: start: 20091026, end: 20091121
  37. METHOTREXATE [Concomitant]
     Dates: start: 20100214, end: 20100218

REACTIONS (31)
  - PSEUDOMONAS INFECTION [None]
  - ACUTE GRAFT VERSUS HOST DISEASE IN SKIN [None]
  - INSOMNIA [None]
  - DECREASED APPETITE [None]
  - INFECTION [None]
  - ACUTE GRAFT VERSUS HOST DISEASE IN INTESTINE [None]
  - HEPATIC FUNCTION ABNORMAL [None]
  - PNEUMONIA [None]
  - URINARY RETENTION [None]
  - RENAL IMPAIRMENT [None]
  - PAIN [None]
  - EWING'S SARCOMA [None]
  - RADIATION PNEUMONITIS [None]
  - BONE MARROW FAILURE [None]
  - CANDIDIASIS [None]
  - NAUSEA [None]
  - HYPONATRAEMIA [None]
  - MELAENA [None]
  - ENTEROCOCCAL INFECTION [None]
  - DEPRESSION [None]
  - PANCREATITIS [None]
  - FEBRILE NEUTROPENIA [None]
  - GRAFT VERSUS HOST DISEASE IN SKIN [None]
  - ENCEPHALITIS HERPES [None]
  - CHEST WALL MASS [None]
  - LUNG NEOPLASM [None]
  - INFECTIOUS PERITONITIS [None]
  - GRAFT VERSUS HOST DISEASE IN INTESTINE [None]
  - LOBAR PNEUMONIA [None]
  - DIARRHOEA [None]
  - MEMORY IMPAIRMENT [None]
